FAERS Safety Report 16883659 (Version 4)
Quarter: 2019Q4

REPORT INFORMATION
  Report Type: Other
  Country: US (occurrence: US)
  Receive Date: 20191004
  Receipt Date: 20191122
  Transmission Date: 20200122
  Serious: No
  Sender: FDA-Public Use
  Company Number: US-SUNOVION-2019SUN004011

PATIENT
  Sex: Female

DRUGS (1)
  1. LUNESTA [Suspect]
     Active Substance: ESZOPICLONE
     Indication: INSOMNIA
     Dosage: 3 MG, HS
     Route: 048
     Dates: start: 201907, end: 20191029

REACTIONS (13)
  - Poor quality sleep [Unknown]
  - Hypersomnia [Unknown]
  - Drug ineffective [Unknown]
  - Memory impairment [Unknown]
  - Insomnia [Not Recovered/Not Resolved]
  - Weight increased [Unknown]
  - Therapeutic product effect decreased [Unknown]
  - Confusional state [Unknown]
  - Feeling abnormal [Unknown]
  - Product dose omission [Unknown]
  - Condition aggravated [Unknown]
  - Hangover [Unknown]
  - Amnesia [Unknown]
